FAERS Safety Report 8228083-1 (Version None)
Quarter: 2012Q1

REPORT INFORMATION
  Report Type: 
  Country: None (occurrence: None)
  Receive Date: 20120322
  Receipt Date: 20111230
  Transmission Date: 20120608
  Serious: No
  Sender: FDA-Public Use
  Company Number: US-BRISTOL-MYERS SQUIBB COMPANY-16323800

PATIENT
  Age: 69 Year
  Sex: Male

DRUGS (1)
  1. ERBITUX [Suspect]

REACTIONS (4)
  - SKIN DISORDER [None]
  - SPEECH DISORDER [None]
  - MALAISE [None]
  - LOCALISED INFECTION [None]
